FAERS Safety Report 5420562-5 (Version None)
Quarter: 2007Q3

REPORT INFORMATION
  Report Type: 
  Country: None (occurrence: None)
  Receive Date: 20070821
  Receipt Date: 20070810
  Transmission Date: 20080115
  Serious: Yes (Death)
  Sender: FDA-Public Use
  Company Number: BR-JNJFOC-20070800673

PATIENT
  Age: 13 Year
  Sex: Female

DRUGS (4)
  1. TYLENOL [Suspect]
  2. TYLENOL [Suspect]
     Indication: INTENTIONAL DRUG MISUSE
     Dosage: APPROXIMATELY 6-9 G
  3. PHENOBARBITAL TAB [Suspect]
     Indication: CONVULSION
  4. PHENOBARBITAL TAB [Suspect]
     Indication: INTENTIONAL DRUG MISUSE
     Dosage: 500-1000 MG

REACTIONS (15)
  - ACTIVATED PARTIAL THROMBOPLASTIN TIME PROLONGED [None]
  - CARDIO-RESPIRATORY ARREST [None]
  - CEREBELLAR SYNDROME [None]
  - CEREBRAL INFARCTION [None]
  - COMA HEPATIC [None]
  - COORDINATION ABNORMAL [None]
  - DEMYELINATION [None]
  - GENERAL PHYSICAL HEALTH DETERIORATION [None]
  - HEPATIC ENCEPHALOPATHY [None]
  - HEPATIC FAILURE [None]
  - MULTIPLE DRUG OVERDOSE INTENTIONAL [None]
  - NYSTAGMUS [None]
  - PROTHROMBIN TIME PROLONGED [None]
  - RENAL TUBULAR ATROPHY [None]
  - UNRESPONSIVE TO STIMULI [None]
